FAERS Safety Report 24680819 (Version 2)
Quarter: 2024Q4

REPORT INFORMATION
  Report Type: Spontaneous
  Country: JP (occurrence: JP)
  Receive Date: 20241129
  Receipt Date: 20241217
  Transmission Date: 20250115
  Serious: Yes (Other)
  Sender: ALEXION PHARMACEUTICALS
  Company Number: JP-ASTRAZENECA-240133705_064320_P_1

PATIENT
  Age: 8 Decade
  Weight: 75 kg

DRUGS (12)
  1. ANDEXXA [Suspect]
     Active Substance: ANDEXANET ALFA
     Indication: Putamen haemorrhage
     Dosage: DOSE UNKNOWN
  2. ANDEXXA [Suspect]
     Active Substance: ANDEXANET ALFA
     Dosage: DOSE UNKNOWN
     Route: 042
  3. ANDEXXA [Suspect]
     Active Substance: ANDEXANET ALFA
     Dosage: DOSE UNKNOWN
  4. ANDEXXA [Suspect]
     Active Substance: ANDEXANET ALFA
     Dosage: DOSE UNKNOWN
     Route: 042
  5. ANDEXXA [Suspect]
     Active Substance: ANDEXANET ALFA
     Dosage: METHOD A (400 MG IV AT 30 MG/MIN FOLLOWED BY 480 MG IV AT 4 MG/MIN FOR 2 HRS)
  6. ANDEXXA [Suspect]
     Active Substance: ANDEXANET ALFA
     Dosage: METHOD A (400 MG IV AT 30 MG/MIN FOLLOWED BY 480 MG IV AT 4 MG/MIN FOR 2 HRS)
     Route: 042
  7. ANDEXXA [Suspect]
     Active Substance: ANDEXANET ALFA
     Dosage: METHOD A (400 MG IV AT 30 MG/MIN FOLLOWED BY 480 MG IV AT 4 MG/MIN FOR 2 HRS)
  8. ANDEXXA [Suspect]
     Active Substance: ANDEXANET ALFA
     Dosage: METHOD A (400 MG IV AT 30 MG/MIN FOLLOWED BY 480 MG IV AT 4 MG/MIN FOR 2 HRS)
     Route: 042
  9. EDOXABAN TOSYLATE [Concomitant]
     Active Substance: EDOXABAN TOSYLATE
     Dosage: 60 MILLIGRAM, QD
  10. EDOXABAN TOSYLATE [Concomitant]
     Active Substance: EDOXABAN TOSYLATE
     Dosage: 60 MILLIGRAM, QD
     Route: 048
  11. EDOXABAN TOSYLATE [Concomitant]
     Active Substance: EDOXABAN TOSYLATE
  12. EDOXABAN TOSYLATE [Concomitant]
     Active Substance: EDOXABAN TOSYLATE
     Route: 048

REACTIONS (2)
  - Depressed level of consciousness [Recovered/Resolved]
  - Haemorrhage [Recovering/Resolving]
